FAERS Safety Report 20993055 (Version 1)
Quarter: 2022Q2

REPORT INFORMATION
  Report Type: Spontaneous
  Country: US (occurrence: US)
  Receive Date: 20220622
  Receipt Date: 20220622
  Transmission Date: 20220721
  Serious: Yes (Other)
  Sender: FDA-Public Use
  Company Number: US-BRISTOL-MYERS SQUIBB COMPANY-2022-058219

PATIENT
  Age: 76 Year
  Sex: Male

DRUGS (1)
  1. REVLIMID [Suspect]
     Active Substance: LENALIDOMIDE
     Indication: Plasma cell myeloma
     Dosage: FREQ : ^1 CAPSULE BY MOUTH DAILY 14 DAYS,7 DAYS OFF^
     Route: 048
     Dates: start: 20210616

REACTIONS (2)
  - Pneumonia [Unknown]
  - Off label use [Unknown]
